FAERS Safety Report 12774733 (Version 1)
Quarter: 2016Q3

REPORT INFORMATION
  Report Type: Spontaneous
  Country: US (occurrence: US)
  Receive Date: 20160921
  Receipt Date: 20160921
  Transmission Date: 20161109
  Serious: Yes (Other)
  Sender: FDA-Public Use
  Company Number: None

PATIENT
  Age: 61 Year
  Sex: Male
  Weight: 91.63 kg

DRUGS (8)
  1. XIIDRA [Suspect]
     Active Substance: LIFITEGRAST
     Indication: DRY EYE
     Dates: start: 20160902, end: 20160903
  2. BUPROPION XL [Concomitant]
     Active Substance: BUPROPION
  3. FISH OIL [Concomitant]
     Active Substance: FISH OIL
  4. RESTASIS [Concomitant]
     Active Substance: CYCLOSPORINE
  5. MULTIPLE VITAMIN [Concomitant]
     Active Substance: VITAMINS
  6. MONTELUKAST [Concomitant]
     Active Substance: MONTELUKAST SODIUM
  7. MINOCYCLINE [Concomitant]
     Active Substance: MINOCYCLINE\MINOCYCLINE HYDROCHLORIDE
  8. EYE PLUG IN LEFT EYE [Concomitant]

REACTIONS (5)
  - Ocular discomfort [None]
  - Headache [None]
  - Visual impairment [None]
  - Cataract [None]
  - Vision blurred [None]

NARRATIVE: CASE EVENT DATE: 20160902
